FAERS Safety Report 6213102-4 (Version None)
Quarter: 2009Q2

REPORT INFORMATION
  Report Type: 
  Country: None (occurrence: None)
  Receive Date: 20090603
  Receipt Date: 20090525
  Transmission Date: 20091009
  Serious: Yes (Death)
  Sender: FDA-Public Use
  Company Number: B0543876A

PATIENT
  Sex: Male

DRUGS (13)
  1. TRIZIVIR [Suspect]
     Indication: HIV INFECTION
     Route: 048
     Dates: start: 20041018, end: 20051214
  2. RETROVIR [Suspect]
     Indication: HIV INFECTION
     Route: 065
     Dates: start: 19960915, end: 19970812
  3. EPIVIR [Suspect]
     Indication: HIV INFECTION
     Route: 065
     Dates: start: 19970812, end: 20011016
  4. COMBIVIR [Suspect]
     Indication: HIV INFECTION
     Route: 065
     Dates: start: 20011016, end: 20021029
  5. CRIXIVAN [Suspect]
     Indication: HIV INFECTION
     Route: 048
     Dates: start: 20031125, end: 20051214
  6. KALETRA [Suspect]
     Indication: HIV INFECTION
     Route: 048
     Dates: start: 20031125, end: 20051214
  7. VIREAD [Suspect]
     Indication: HIV INFECTION
     Route: 048
     Dates: start: 20021029, end: 20051214
  8. NORVIR [Suspect]
     Indication: HIV INFECTION
     Route: 065
     Dates: start: 19960915, end: 20031125
  9. VIDEX [Suspect]
     Indication: HIV INFECTION
     Route: 065
     Dates: start: 19960915, end: 19970812
  10. INVIRASE [Suspect]
     Indication: HIV INFECTION
     Route: 065
     Dates: start: 19970812, end: 20021029
  11. ZERIT [Suspect]
     Indication: HIV INFECTION
     Route: 065
     Dates: start: 19970812, end: 20011016
  12. VIRAMUNE [Suspect]
     Indication: HIV INFECTION
     Route: 065
     Dates: start: 20021029, end: 20031125
  13. BACTRIM [Concomitant]
     Route: 048

REACTIONS (3)
  - DEATH [None]
  - GASTROINTESTINAL DISORDER [None]
  - VIROLOGIC FAILURE [None]
